FAERS Safety Report 24145249 (Version 3)
Quarter: 2025Q1

REPORT INFORMATION
  Report Type: Spontaneous
  Country: JP (occurrence: JP)
  Receive Date: 20240729
  Receipt Date: 20250219
  Transmission Date: 20250408
  Serious: Yes (Hospitalization, Other)
  Sender: GLAXOSMITHKLINE
  Company Number: JP-GLAXOSMITHKLINE-JP2024JPN092446

PATIENT

DRUGS (35)
  1. DAPRODUSTAT [Suspect]
     Active Substance: DAPRODUSTAT
     Indication: Nephrogenic anaemia
     Dates: start: 20230812
  2. ZOLPIDEM TARTRATE [Concomitant]
     Active Substance: ZOLPIDEM TARTRATE
     Indication: Insomnia
  3. VONOPRAZAN FUMARATE [Concomitant]
     Active Substance: VONOPRAZAN FUMARATE
     Indication: Gastritis
  4. MONTELUKAST [Concomitant]
     Active Substance: MONTELUKAST
     Indication: Cough
  5. CALTAN [Concomitant]
     Active Substance: CALCIUM CARBONATE
     Indication: Hyperphosphataemia
  6. LANTHANUM CARBONATE [Concomitant]
     Active Substance: LANTHANUM CARBONATE
     Indication: Hyperphosphataemia
  7. FERRIC CITRATE ANHYDROUS [Concomitant]
     Active Substance: FERRIC CITRATE ANHYDROUS
     Indication: Hyperphosphataemia
  8. HERBALS [Concomitant]
     Active Substance: HERBALS
     Indication: Insomnia
  9. ASPIRIN [Concomitant]
     Active Substance: ASPIRIN
     Indication: Cerebral infarction
  10. POLAPREZINC [Concomitant]
     Active Substance: POLAPREZINC
     Indication: Gastritis
  11. DROXIDOPA [Concomitant]
     Active Substance: DROXIDOPA
     Indication: Blood pressure decreased
  12. AMEZINIUM METILSULFATE [Concomitant]
     Active Substance: AMEZINIUM METILSULFATE
     Indication: Blood pressure decreased
  13. ACETAMINOPHEN\CAFFEINE\PROMETHAZINE\SALICYLAMIDE [Concomitant]
     Active Substance: ACETAMINOPHEN\CAFFEINE\PROMETHAZINE\SALICYLAMIDE
     Indication: Nasopharyngitis
  14. TENAPANOR HYDROCHLORIDE [Concomitant]
     Active Substance: TENAPANOR HYDROCHLORIDE
     Indication: Hyperphosphataemia
  15. NIFEDIPINE [Concomitant]
     Active Substance: NIFEDIPINE
     Indication: Hypertension
  16. LAGNOS NF [Concomitant]
     Indication: Constipation
  17. CALONAL [Concomitant]
     Active Substance: ACETAMINOPHEN
     Indication: Pyrexia
  18. METHYLCOBALAMIN [Concomitant]
     Active Substance: METHYLCOBALAMIN
     Indication: Vitamin B12 deficiency
  19. MIROGABALIN BESYLATE [Concomitant]
     Active Substance: MIROGABALIN BESYLATE
     Indication: Pain
  20. ELOBIXIBAT [Concomitant]
     Active Substance: ELOBIXIBAT
     Indication: Constipation
  21. LINZESS [Concomitant]
     Active Substance: LINACLOTIDE
     Indication: Constipation
  22. MIROGABALIN BESYLATE [Concomitant]
     Active Substance: MIROGABALIN BESYLATE
     Indication: Pain
  23. SODIUM FERROUS CITRATE [Concomitant]
     Active Substance: SODIUM FERROUS CITRATE
     Indication: Iron deficiency
  24. ETIZOLAM [Concomitant]
     Active Substance: ETIZOLAM
     Indication: Insomnia
  25. EPINASTINE HYDROCHLORIDE [Concomitant]
     Active Substance: EPINASTINE HYDROCHLORIDE
     Indication: Conjunctivitis allergic
  26. HEPARINOID [Concomitant]
     Indication: Asteatosis
  27. Sp [Concomitant]
     Indication: Cough
  28. UREA [Concomitant]
     Active Substance: UREA
     Indication: Dry skin
  29. LOXOPROFEN SODIUM [Concomitant]
     Active Substance: LOXOPROFEN SODIUM
     Indication: Back pain
  30. RINDERON VG [Concomitant]
     Active Substance: BETAMETHASONE VALERATE\GENTAMICIN SULFATE
     Indication: Dermatitis
  31. PETROLATUM [Concomitant]
     Active Substance: PETROLATUM
     Indication: Asteatosis
  32. AMLODIPINE [Concomitant]
     Active Substance: AMLODIPINE BESYLATE
     Indication: Hypertension
  33. P TOL [Concomitant]
     Indication: Hyperphosphataemia
  34. LEVOTHYROXINE SODIUM [Concomitant]
     Active Substance: LEVOTHYROXINE SODIUM
     Indication: Hypothyroidism
  35. HERBALS [Concomitant]
     Active Substance: HERBALS
     Indication: Cough

REACTIONS (6)
  - Retinal haemorrhage [Recovering/Resolving]
  - Visual acuity reduced [Recovering/Resolving]
  - Spinal cord injury cervical [Recovering/Resolving]
  - Cardiac failure [Unknown]
  - Fall [Unknown]
  - Fluid retention [Unknown]

NARRATIVE: CASE EVENT DATE: 20240309
